FAERS Safety Report 14681948 (Version 10)
Quarter: 2019Q2

REPORT INFORMATION
  Report Type: Spontaneous
  Country: US (occurrence: US)
  Receive Date: 20180326
  Receipt Date: 20190604
  Transmission Date: 20190711
  Serious: Yes (Death, Hospitalization)
  Sender: FDA-Public Use
  Company Number: US-ACTELION-A-NJ2018-165444

PATIENT
  Sex: Female
  Weight: 69.84 kg

DRUGS (5)
  1. VELETRI [Suspect]
     Active Substance: EPOPROSTENOL
     Indication: PULMONARY ARTERIAL HYPERTENSION
     Dosage: 37 NG/KG, PER MIN
     Route: 042
  2. ADCIRCA [Concomitant]
     Active Substance: TADALAFIL
  3. VELETRI [Suspect]
     Active Substance: EPOPROSTENOL
     Dosage: 36 NG/KG, PER MIN
     Route: 042
  4. VELETRI [Suspect]
     Active Substance: EPOPROSTENOL
     Dosage: 38 NG/KG, PER MIN
     Route: 042
  5. ELIQUIS [Concomitant]
     Active Substance: APIXABAN

REACTIONS (20)
  - Catheter site pain [Unknown]
  - Hypotension [Unknown]
  - Catheter site haemorrhage [Unknown]
  - Device occlusion [Unknown]
  - Scratch [Unknown]
  - Catheter site discharge [Recovered/Resolved]
  - Death [Fatal]
  - Lung disorder [Unknown]
  - Central venous catheterisation [Unknown]
  - Dyspnoea [Unknown]
  - Condition aggravated [Unknown]
  - Localised oedema [Unknown]
  - Catheter site pruritus [Unknown]
  - Burning sensation [Unknown]
  - Skin induration [Unknown]
  - Vascular device infection [Unknown]
  - Device alarm issue [Unknown]
  - Catheter site erosion [Recovered/Resolved]
  - Catheter site erythema [Unknown]
  - Device issue [Unknown]
